FAERS Safety Report 18336353 (Version 1)
Quarter: 2020Q4

REPORT INFORMATION
  Report Type: Spontaneous
  Country: US (occurrence: US)
  Receive Date: 20201001
  Receipt Date: 20201001
  Transmission Date: 20210113
  Serious: No
  Sender: FDA-Public Use
  Company Number: US-TEVA-2020-US-1833855

PATIENT
  Age: 75 Year
  Sex: Male
  Weight: 80.29 kg

DRUGS (1)
  1. TADAFIL [Suspect]
     Active Substance: TADALAFIL
     Route: 065

REACTIONS (1)
  - Drug ineffective [Unknown]
